FAERS Safety Report 11570473 (Version 3)
Quarter: 2015Q4

REPORT INFORMATION
  Report Type: Spontaneous
  Country: US (occurrence: US)
  Receive Date: 20150916
  Receipt Date: 20151104
  Transmission Date: 20160304
  Serious: No
  Sender: FDA-Public Use
  Company Number: US-ELI_LILLY_AND_COMPANY-US200909001449

PATIENT
  Age: 65 Year
  Sex: Female

DRUGS (3)
  1. FORTEO [Suspect]
     Active Substance: TERIPARATIDE
     Dosage: 20 UG, QD
     Dates: end: 20101203
  2. FORTEO [Suspect]
     Active Substance: TERIPARATIDE
     Dosage: 20 UG, DAILY (1/D)
     Route: 065
     Dates: end: 20101203
  3. FORTEO [Suspect]
     Active Substance: TERIPARATIDE
     Indication: OSTEOPOROSIS
     Dosage: 20 UG, DAILY (1/D)
     Route: 065
     Dates: start: 20090902

REACTIONS (10)
  - Feeling abnormal [Unknown]
  - Headache [Unknown]
  - Bone pain [Unknown]
  - Bone density decreased [Unknown]
  - Insomnia [Unknown]
  - Injection site pain [Unknown]
  - Pain in extremity [Unknown]
  - Dry skin [Unknown]
  - Abdominal pain upper [Unknown]
  - Arthralgia [Unknown]

NARRATIVE: CASE EVENT DATE: 200909
